FAERS Safety Report 19074575 (Version 1)
Quarter: 2021Q1

REPORT INFORMATION
  Report Type: Spontaneous
  Country: US (occurrence: US)
  Receive Date: 20210330
  Receipt Date: 20210330
  Transmission Date: 20210420
  Serious: No
  Sender: FDA-Public Use
  Company Number: US-ROCHE-2652130

PATIENT
  Sex: Male

DRUGS (2)
  1. ERIVEDGE [Suspect]
     Active Substance: VISMODEGIB
     Indication: BASAL CELL CARCINOMA
     Dosage: 21 DAYS ON/OFF 7 DAYS, ONGOING:YES
     Route: 048
  2. ERIVEDGE [Suspect]
     Active Substance: VISMODEGIB
     Dosage: ONCE DAILY FOR 3 WEEKS PER MONTH AND 1 WEEK OFF
     Route: 048
     Dates: start: 2020

REACTIONS (2)
  - Decreased appetite [Unknown]
  - Ageusia [Recovering/Resolving]
